FAERS Safety Report 17468113 (Version 2)
Quarter: 2020Q1

REPORT INFORMATION
  Report Type: Report from Study
  Country: DE (occurrence: DE)
  Receive Date: 20200227
  Receipt Date: 20200303
  Transmission Date: 20200409
  Serious: Yes (Death, Other)
  Sender: FDA-Public Use
  Company Number: DE-PFIZER INC-2020076180

PATIENT

DRUGS (3)
  1. PENTOSTATIN. [Suspect]
     Active Substance: PENTOSTATIN
     Indication: CHRONIC LYMPHOCYTIC LEUKAEMIA
     Dosage: 4 MG/M2, WEEKLY FOR 3 WEEKS
     Route: 042
  2. PENTOSTATIN. [Suspect]
     Active Substance: PENTOSTATIN
     Dosage: 4 MG/M2, EVERY OTHER WEEK FOR 6 WEEKS
     Route: 042
  3. PENTOSTATIN. [Suspect]
     Active Substance: PENTOSTATIN
     Dosage: 4 MG/M2, MONTHLY FOR 6 MONTHS
     Route: 042

REACTIONS (2)
  - Thrombocytopenia [Not Recovered/Not Resolved]
  - Cerebral haemorrhage [Fatal]
